FAERS Safety Report 9235259 (Version 2)
Quarter: 2013Q2

REPORT INFORMATION
  Report Type: Spontaneous
  Country: US (occurrence: US)
  Receive Date: 20130417
  Receipt Date: 20130524
  Transmission Date: 20140414
  Serious: Yes (Other)
  Sender: FDA-Public Use
  Company Number: US-BIOGENIDEC-2013BI033467

PATIENT
  Age: 50 Year
  Sex: Male

DRUGS (4)
  1. AVONEX [Suspect]
     Indication: PRODUCT USED FOR UNKNOWN INDICATION
     Route: 030
     Dates: start: 2008, end: 20130510
  2. PANTOPRAZOLE SODIUM [Concomitant]
  3. DICYCLOMINE HCL [Concomitant]
  4. TRAMADOL HCI [Concomitant]

REACTIONS (1)
  - Convulsion [Recovered/Resolved]
